FAERS Safety Report 15480846 (Version 1)
Quarter: 2018Q4

REPORT INFORMATION
  Report Type: Report from Study
  Country: PK (occurrence: PK)
  Receive Date: 20181010
  Receipt Date: 20181010
  Transmission Date: 20190205
  Serious: Yes (Death)
  Sender: FDA-Public Use
  Company Number: PHHY2018PK120316

PATIENT
  Age: 40 Year
  Sex: Female
  Weight: 44 kg

DRUGS (1)
  1. TASIGNA [Suspect]
     Active Substance: NILOTINIB
     Indication: CHRONIC MYELOID LEUKAEMIA
     Dosage: 600 MG, BID
     Route: 048
     Dates: start: 20180606

REACTIONS (2)
  - Incorrect dose administered [Unknown]
  - Vomiting [Fatal]

NARRATIVE: CASE EVENT DATE: 20180606
